APPROVED DRUG PRODUCT: ACTONEL
Active Ingredient: RISEDRONATE SODIUM
Strength: 30MG
Dosage Form/Route: TABLET;ORAL
Application: N020835 | Product #001
Applicant: ALLERGAN PHARMACEUTICALS INTERNATIONAL LTD
Approved: Mar 27, 1998 | RLD: Yes | RS: No | Type: DISCN